FAERS Safety Report 7518017-7 (Version None)
Quarter: 2011Q2

REPORT INFORMATION
  Report Type: 
  Country: None (occurrence: None)
  Receive Date: 20110523
  Receipt Date: 20110506
  Transmission Date: 20111010
  Serious: Yes (Hospitalization, Other)
  Sender: FDA-Public Use
  Company Number: 1713747-2011-0008

PATIENT
  Age: 56 Year
  Sex: Male
  Weight: 86 kg

DRUGS (2)
  1. DELFLEX W/ DEXTROSE 2.5% [Suspect]
     Dosage: INTRAPERITONEALLY
     Route: 033
     Dates: start: 20110208
  2. DELFLEX W/ DEXTROSE 1.5% [Suspect]
     Indication: RENAL FAILURE CHRONIC
     Dosage: INTRAPERITONEALLY
     Route: 033
     Dates: start: 20110228

REACTIONS (3)
  - NAUSEA [None]
  - VOMITING [None]
  - PRODUCT SUBSTITUTION ISSUE [None]
